FAERS Safety Report 6494021-5 (Version None)
Quarter: 2009Q4

REPORT INFORMATION
  Report Type: 
  Country: None (occurrence: None)
  Receive Date: 20091214
  Receipt Date: 20081211
  Transmission Date: 20100525
  Serious: No
  Sender: FDA-Public Use
  Company Number: US-BRISTOL-MYERS SQUIBB COMPANY-14439665

PATIENT
  Age: 45 Year
  Sex: Female
  Weight: 86 kg

DRUGS (3)
  1. ABILIFY [Suspect]
  2. TRAZODONE HCL [Concomitant]
  3. KLONOPIN [Concomitant]

REACTIONS (6)
  - FEELING ABNORMAL [None]
  - MUSCLE RIGIDITY [None]
  - SOMNOLENCE [None]
  - TENSION [None]
  - THIRST [None]
  - WEIGHT INCREASED [None]
